FAERS Safety Report 8965387 (Version 1)
Quarter: 2012Q4

REPORT INFORMATION
  Report Type: 
  Country: GR (occurrence: GR)
  Receive Date: 20121213
  Receipt Date: 20121213
  Transmission Date: 20130627
  Serious: Yes (Hospitalization, Other)
  Sender: FDA-Public Use
  Company Number: US-ARROW-2012-21891

PATIENT
  Age: 30 Year
  Sex: Male

DRUGS (4)
  1. ZOLPIDEM TARTRATE (UNKNOWN) [Suspect]
     Indication: INSOMNIA
     Dosage: 200-300 mg per night, representing 20-30 tablets per night
     Route: 048
  2. ZOLPIDEM TARTRATE (UNKNOWN) [Suspect]
     Indication: EUPHORIC MOOD
  3. ZOLPIDEM TARTRATE (UNKNOWN) [Suspect]
     Indication: OVERDOSE
  4. COCAINE [Suspect]
     Indication: SUBSTANCE ABUSE
     Dosage: inhaled 5 grams daily; then 3-4 grams daily
     Route: 055

REACTIONS (15)
  - Amnesia [Recovering/Resolving]
  - Psychomotor hyperactivity [Recovering/Resolving]
  - Euphoric mood [Recovering/Resolving]
  - Agitation [Recovering/Resolving]
  - Drug abuse [Recovering/Resolving]
  - Condition aggravated [Recovering/Resolving]
  - Intentional drug misuse [Recovering/Resolving]
  - Overdose [Recovering/Resolving]
  - Drug interaction [Recovering/Resolving]
  - Logorrhoea [Recovered/Resolved]
  - Pathological gambling [Recovered/Resolved]
  - Hyperphagia [Recovered/Resolved]
  - Depression [Recovered/Resolved]
  - Hypersomnia [Recovered/Resolved]
  - Drug withdrawal syndrome [Recovered/Resolved]
